FAERS Safety Report 9366211 (Version 4)
Quarter: 2013Q4

REPORT INFORMATION
  Report Type: Spontaneous
  Country: US (occurrence: US)
  Receive Date: 20130625
  Receipt Date: 20131014
  Transmission Date: 20140711
  Serious: Yes (Death, Hospitalization, Other)
  Sender: FDA-Public Use
  Company Number: US-ASTELLAS-2013US006499

PATIENT
  Age: 91 Year
  Sex: Female

DRUGS (8)
  1. VESICARE [Suspect]
     Indication: MICTURITION URGENCY
     Dosage: 10 MG, UID/QD
     Route: 048
     Dates: start: 20111207
  2. DILTIAZEM [Suspect]
     Indication: HYPERTENSION
     Dosage: 180 MG, UID/QD
     Route: 048
  3. NEXIUM                             /01479302/ [Concomitant]
     Indication: PRODUCT USED FOR UNKNOWN INDICATION
     Dosage: 40 MG, UID/QD
     Route: 048
  4. PENTASA [Concomitant]
     Indication: PRODUCT USED FOR UNKNOWN INDICATION
     Dosage: 500 MG, BID
     Route: 048
  5. MULTAQ [Concomitant]
     Indication: PRODUCT USED FOR UNKNOWN INDICATION
     Dosage: 400 MG, BID
     Route: 048
  6. EXELON                             /01383201/ [Concomitant]
     Indication: DEMENTIA
     Dosage: UNK
     Route: 061
  7. ARICEPT [Concomitant]
     Indication: MEMORY IMPAIRMENT
     Dosage: 10 MG, QHS
     Route: 048
  8. ASPIRIN [Concomitant]
     Indication: PRODUCT USED FOR UNKNOWN INDICATION
     Dosage: 81 MG, UID/QD
     Route: 048

REACTIONS (19)
  - Death [Fatal]
  - Dementia Alzheimer^s type [Fatal]
  - Failure to thrive [Fatal]
  - Pneumonia [Unknown]
  - Sepsis [Unknown]
  - Dehydration [Unknown]
  - Hypotension [Recovering/Resolving]
  - Urinary tract infection [Unknown]
  - Urinary tract infection [Recovered/Resolved]
  - Musculoskeletal pain [Recovering/Resolving]
  - Seborrhoeic keratosis [Unknown]
  - Pain in extremity [Unknown]
  - Onychomycosis [Unknown]
  - Diarrhoea [Unknown]
  - Faecal incontinence [Unknown]
  - Arthralgia [Unknown]
  - Abdominal tenderness [Unknown]
  - Weight decreased [Unknown]
  - Decreased appetite [Recovering/Resolving]
